FAERS Safety Report 7304494-3 (Version None)
Quarter: 2011Q1

REPORT INFORMATION
  Report Type: 
  Country: None (occurrence: None)
  Receive Date: 20110221
  Receipt Date: 20110207
  Transmission Date: 20110831
  Serious: Yes (Death, Hospitalization)
  Sender: FDA-Public Use
  Company Number: US-GENENTECH-313467

PATIENT
  Sex: Female
  Weight: 98.6 kg

DRUGS (5)
  1. RITUXIMAB [Suspect]
     Indication: MULTIPLE MYELOMA
     Dosage: 540 MG, UNK
  2. MELPHALAN [Suspect]
     Indication: MULTIPLE MYELOMA
     Dosage: 170 MG, UNK
  3. ZEVALIN [Suspect]
     Indication: MULTIPLE MYELOMA
     Dosage: 4.98 MCI, UNK
  4. SUSPECTED DRUG [Suspect]
     Indication: MULTIPLE MYELOMA
  5. GM-CSF [Concomitant]
     Indication: MULTIPLE MYELOMA
     Dosage: UNK
     Dates: end: 20110126

REACTIONS (11)
  - MULTI-ORGAN FAILURE [None]
  - ENGRAFTMENT SYNDROME [None]
  - DYSPNOEA [None]
  - RESPIRATORY DISTRESS [None]
  - SEPSIS [None]
  - HYPOTENSION [None]
  - DIARRHOEA [None]
  - ATRIAL FIBRILLATION [None]
  - PANCYTOPENIA [None]
  - RASH [None]
  - RENAL FAILURE [None]
